FAERS Safety Report 16913334 (Version 3)
Quarter: 2020Q1

REPORT INFORMATION
  Report Type: Spontaneous
  Country: US (occurrence: US)
  Receive Date: 20191014
  Receipt Date: 20200204
  Transmission Date: 20200409
  Serious: No
  Sender: FDA-Public Use
  Company Number: US-JNJFOC-20191019269

PATIENT
  Sex: Male

DRUGS (7)
  1. CALCIUM [Concomitant]
     Active Substance: CALCIUM
     Route: 065
  2. LISINOPRIL. [Concomitant]
     Active Substance: LISINOPRIL
     Indication: HYPERTENSION
     Route: 065
  3. INDOMETHACIN                       /00003801/ [Concomitant]
     Active Substance: INDOMETHACIN
     Indication: PAIN
     Route: 065
  4. MORPHINE [Concomitant]
     Active Substance: MORPHINE
     Route: 065
  5. ZYTIGA [Suspect]
     Active Substance: ABIRATERONE ACETATE
     Route: 048
     Dates: start: 20190628
  6. ZYTIGA [Suspect]
     Active Substance: ABIRATERONE ACETATE
     Indication: PRODUCT USED FOR UNKNOWN INDICATION
     Route: 048
     Dates: start: 20190112
  7. GABAPENTIN. [Concomitant]
     Active Substance: GABAPENTIN
     Indication: PAIN
     Route: 065

REACTIONS (1)
  - Weight decreased [Recovering/Resolving]
